FAERS Safety Report 13573636 (Version 1)
Quarter: 2017Q2

REPORT INFORMATION
  Report Type: Spontaneous
  Country: US (occurrence: US)
  Receive Date: 20170523
  Receipt Date: 20170523
  Transmission Date: 20170830
  Serious: Yes (Other)
  Sender: FDA-Public Use
  Company Number: US-SMITH AND NEPHEW, INC-2017SMT00319

PATIENT
  Age: 70 Year
  Sex: Male

DRUGS (1)
  1. REGRANEX [Suspect]
     Active Substance: BECAPLERMIN
     Indication: DIABETIC ULCER
     Dosage: UNK, 1X/DAY FOR 12 HOURS ON AND 12 HOURS OFF
     Route: 061
     Dates: start: 201704, end: 2017

REACTIONS (4)
  - Application site discolouration [Unknown]
  - Peripheral vascular disorder [Unknown]
  - Wound complication [Recovering/Resolving]
  - Application site pain [Unknown]

NARRATIVE: CASE EVENT DATE: 201704
